FAERS Safety Report 15333822 (Version 1)
Quarter: 2018Q3

REPORT INFORMATION
  Report Type: Spontaneous
  Country: US (occurrence: US)
  Receive Date: 20180825
  Receipt Date: 20180825
  Transmission Date: 20181010
  Serious: Yes (Other)
  Sender: FDA-Public Use
  Company Number: None

PATIENT
  Age: 8 Year
  Sex: Female
  Weight: 31.5 kg

DRUGS (1)
  1. SINGULAIR [Suspect]
     Active Substance: MONTELUKAST SODIUM
     Indication: MULTIPLE ALLERGIES
     Dosage: ?          QUANTITY:1 TABLET(S);?
     Route: 048

REACTIONS (8)
  - Abnormal behaviour [None]
  - Mood swings [None]
  - Irritability [None]
  - Somnambulism [None]
  - Sleep terror [None]
  - Depressed mood [None]
  - Anger [None]
  - Conversion disorder [None]

NARRATIVE: CASE EVENT DATE: 20180818
